FAERS Safety Report 8017570-7 (Version None)
Quarter: 2011Q4

REPORT INFORMATION
  Report Type: 
  Country: None (occurrence: None)
  Receive Date: 20111229
  Receipt Date: 20111229
  Transmission Date: 20120403
  Serious: Yes (Hospitalization)
  Sender: FDA-Public Use
  Company Number: None

PATIENT
  Age: 64 Year
  Sex: Male
  Weight: 107.4 kg

DRUGS (5)
  1. TOPROL-XL [Concomitant]
  2. ASPIRIN [Suspect]
     Dosage: 81MG DAILY PO CHRONIC
     Route: 048
  3. LISINOPRIL [Concomitant]
  4. ALLOPURINOL [Concomitant]
  5. INDOMETHACIN [Suspect]
     Dosage: 25MG TID PRN PO  CHRONIC
     Route: 048

REACTIONS (5)
  - UPPER GASTROINTESTINAL HAEMORRHAGE [None]
  - HAEMORRHAGIC ANAEMIA [None]
  - LEIOMYOMA [None]
  - DUODENAL ULCER [None]
  - HELICOBACTER TEST POSITIVE [None]
